FAERS Safety Report 5846906-8 (Version None)
Quarter: 2008Q3

REPORT INFORMATION
  Report Type: 
  Country: None (occurrence: None)
  Receive Date: 20080815
  Receipt Date: 20080805
  Transmission Date: 20090109
  Serious: Yes (Other)
  Sender: FDA-Public Use
  Company Number: GB-JNJFOC-20080802451

PATIENT
  Age: 41 Year
  Sex: Male

DRUGS (2)
  1. ACETAMINOPHEN [Suspect]
  2. ACETAMINOPHEN [Suspect]
     Indication: DRUG USE FOR UNKNOWN INDICATION
     Dosage: 3.5 GRAM/DAY (ALLEGED MAXIMUM DOSE)

REACTIONS (2)
  - GRANULOMATOUS LIVER DISEASE [None]
  - HEPATIC CIRRHOSIS [None]
